FAERS Safety Report 12575691 (Version 3)
Quarter: 2016Q3

REPORT INFORMATION
  Report Type: Spontaneous
  Country: US (occurrence: US)
  Receive Date: 20160720
  Receipt Date: 20160808
  Transmission Date: 20161109
  Serious: No
  Sender: FDA-Public Use
  Company Number: US-BEH-2016062939

PATIENT
  Sex: Female
  Weight: 96 kg

DRUGS (28)
  1. AUGMENTIN [Concomitant]
     Active Substance: AMOXICILLIN\CLAVULANATE POTASSIUM
  2. BACTROBAN NASAL [Concomitant]
  3. CLONAZEPAM. [Concomitant]
     Active Substance: CLONAZEPAM
  4. DUONEB [Concomitant]
     Active Substance: ALBUTEROL SULFATE\IPRATROPIUM BROMIDE
  5. HYDROCHLOROTHIAZIDE. [Concomitant]
     Active Substance: HYDROCHLOROTHIAZIDE
  6. HIZENTRA [Suspect]
     Active Substance: HUMAN IMMUNOGLOBULIN G
     Indication: IMMUNODEFICIENCY COMMON VARIABLE
     Route: 058
  7. DIPHENHYDRAMINE. [Concomitant]
     Active Substance: DIPHENHYDRAMINE
  8. LMX [Concomitant]
     Active Substance: LIDOCAINE
  9. ROBAXIN [Concomitant]
     Active Substance: METHOCARBAMOL
  10. FLONASE [Concomitant]
     Active Substance: FLUTICASONE PROPIONATE
  11. CEFTIN [Concomitant]
     Active Substance: CEFUROXIME AXETIL
  12. PROTONIX DR [Concomitant]
  13. MAGNESIUM OXIDE. [Concomitant]
     Active Substance: MAGNESIUM OXIDE
  14. METHYLPREDNISOLONE. [Concomitant]
     Active Substance: METHYLPREDNISOLONE
  15. CIPRO [Concomitant]
     Active Substance: CIPROFLOXACIN HYDROCHLORIDE
  16. ZITHROMAX [Concomitant]
     Active Substance: AZITHROMYCIN DIHYDRATE
  17. TYLENOL EX-STR [Concomitant]
  18. MAXALT [Concomitant]
     Active Substance: RIZATRIPTAN BENZOATE
  19. METFORMIN HCL [Concomitant]
     Active Substance: METFORMIN HYDROCHLORIDE
  20. WELLBUTRIN SR [Concomitant]
     Active Substance: BUPROPION HYDROCHLORIDE
  21. PULMICORT TURBUHALER [Concomitant]
     Active Substance: BUDESONIDE
  22. SPIRONOLACTONE. [Concomitant]
     Active Substance: SPIRONOLACTONE
  23. CYMBALTA [Concomitant]
     Active Substance: DULOXETINE HYDROCHLORIDE
  24. BACLOFEN. [Concomitant]
     Active Substance: BACLOFEN
  25. AMITRIPTYLINE HCL [Concomitant]
     Active Substance: AMITRIPTYLINE
  26. EPIPEN [Concomitant]
     Active Substance: EPINEPHRINE
  27. COZAAR [Concomitant]
     Active Substance: LOSARTAN POTASSIUM
  28. CRESTOR [Concomitant]
     Active Substance: ROSUVASTATIN CALCIUM

REACTIONS (2)
  - Viral infection [Unknown]
  - Asthma [Unknown]
